FAERS Safety Report 10019442 (Version 2)
Quarter: 2014Q1

REPORT INFORMATION
  Report Type: Spontaneous
  Country: US (occurrence: US)
  Receive Date: 20140318
  Receipt Date: 20140318
  Transmission Date: 20141002
  Serious: Yes (Other)
  Sender: FDA-Public Use
  Company Number: US-CUBIST PHARMACEUTICAL, INC.-2014CBST000349

PATIENT
  Sex: Male

DRUGS (1)
  1. ENTEREG [Suspect]
     Indication: SURGERY

REACTIONS (1)
  - Surgery [Unknown]
